FAERS Safety Report 5659067-5 (Version None)
Quarter: 2008Q1

REPORT INFORMATION
  Report Type: 
  Country: None (occurrence: None)
  Receive Date: 20080310
  Receipt Date: 20071022
  Transmission Date: 20080703
  Serious: No
  Sender: FDA-Public Use
  Company Number: US-BAYER-200713445BCC

PATIENT
  Age: 71 Year
  Sex: Male
  Weight: 70 kg

DRUGS (6)
  1. ALEVE [Suspect]
     Indication: BACK PAIN
     Dosage: UNIT DOSE: 220 MG
     Route: 048
     Dates: start: 20071021
  2. ALEVE [Suspect]
     Dosage: UNIT DOSE: 220 MG
     Route: 048
     Dates: start: 20071022
  3. FLOMAX [Concomitant]
  4. LIPITOR [Concomitant]
  5. ZETIA [Concomitant]
  6. DIABETES MEDICATION [Concomitant]

REACTIONS (2)
  - ASTHENIA [None]
  - DIZZINESS [None]
